FAERS Safety Report 7508981-4 (Version None)
Quarter: 2011Q2

REPORT INFORMATION
  Report Type: 
  Country: None (occurrence: None)
  Receive Date: 20110527
  Receipt Date: 20110525
  Transmission Date: 20111010
  Serious: Yes (Hospitalization)
  Sender: FDA-Public Use
  Company Number: JP-SANOFI-AVENTIS-2011SA032671

PATIENT

DRUGS (1)
  1. PLAVIX [Suspect]
     Route: 048

REACTIONS (1)
  - LUNG DISORDER [None]
